FAERS Safety Report 9738625 (Version 4)
Quarter: 2014Q2

REPORT INFORMATION
  Report Type: Spontaneous
  Country: US (occurrence: US)
  Receive Date: 20131209
  Receipt Date: 20140401
  Transmission Date: 20141212
  Serious: Yes (Other)
  Sender: FDA-Public Use
  Company Number: US-BIOGENIDEC-2013BI116318

PATIENT
  Sex: Female

DRUGS (11)
  1. TYSABRI [Suspect]
     Indication: MULTIPLE SCLEROSIS
     Route: 042
     Dates: start: 20130610, end: 20131212
  2. PAROXETINE [Concomitant]
     Route: 048
  3. MILK OF MAGNESIA [Concomitant]
  4. FENTANYL [Concomitant]
  5. LORAZEPAM [Concomitant]
     Route: 048
  6. IBUPROFEN [Concomitant]
     Route: 048
  7. FAMOTIDINE [Concomitant]
     Route: 048
  8. LEVOTHYROXINE [Concomitant]
     Route: 048
  9. BACLOFEN [Concomitant]
     Route: 048
  10. GABAPENTIN [Concomitant]
     Route: 048
  11. DOCUSATE [Concomitant]

REACTIONS (4)
  - Endometrial cancer [Not Recovered/Not Resolved]
  - Ovarian cyst [Not Recovered/Not Resolved]
  - Cystitis [Recovered/Resolved]
  - Malaise [Not Recovered/Not Resolved]
